FAERS Safety Report 20600364 (Version 1)
Quarter: 2022Q1

REPORT INFORMATION
  Report Type: Spontaneous
  Country: US (occurrence: US)
  Receive Date: 20220316
  Receipt Date: 20220316
  Transmission Date: 20220424
  Serious: No
  Sender: FDA-Public Use
  Company Number: US-AMGEN-USASP2022044260

PATIENT
  Age: 56 Year
  Sex: Male
  Weight: 122.45 kg

DRUGS (2)
  1. PROCRIT [Suspect]
     Active Substance: ERYTHROPOIETIN
     Indication: Anaemia
     Dosage: 10000 INTERNATIONAL UNIT PER MILLILITRE, Q2WK
     Route: 065
     Dates: start: 20200730
  2. PROCRIT [Suspect]
     Active Substance: ERYTHROPOIETIN
     Dosage: 20000 INTERNATIONAL UNIT PER MILLILITRE
     Route: 065

REACTIONS (2)
  - Product dose omission issue [Unknown]
  - Blood creatine phosphokinase increased [Unknown]

NARRATIVE: CASE EVENT DATE: 20210101
